FAERS Safety Report 25968551 (Version 1)
Quarter: 2025Q4

REPORT INFORMATION
  Report Type: Spontaneous
  Country: EU (occurrence: EU)
  Receive Date: 20251028
  Receipt Date: 20251028
  Transmission Date: 20260118
  Serious: Yes (Other)
  Sender: ASTELLAS
  Company Number: EU-ASTELLAS-2025-AER-058504

PATIENT
  Sex: Female

DRUGS (7)
  1. TACROLIMUS [Suspect]
     Active Substance: TACROLIMUS
     Indication: Hepatitis
     Dosage: TARGET LEVEL OF 7-8 MCG/L
     Route: 065
     Dates: start: 20250523, end: 20250825
  2. TACROLIMUS [Suspect]
     Active Substance: TACROLIMUS
     Dosage: REDUCED IN ACCORDANCE WITH TACROLIMUS LEVELS AND RENAL FUNCTION
     Route: 065
     Dates: start: 20250825
  3. TACROLIMUS [Suspect]
     Active Substance: TACROLIMUS
     Dosage: REDUCED 0.5 MG PER WEEK AFTER IMPROVEMENT IN RENAL FUNCTION
     Route: 065
  4. METHYLPREDNISOLONE [Concomitant]
     Active Substance: METHYLPREDNISOLONE
     Indication: Liver function test increased
     Dosage: HIGH DOSE
     Route: 042
     Dates: start: 20250410
  5. METHYLPREDNISOLONE [Concomitant]
     Active Substance: METHYLPREDNISOLONE
     Indication: Hepatotoxicity
     Dosage: HIGH DOSE IV WAS REINITIATED AND MAINTAINED FOR 7 DAYS BEFORE BEGINNING A TAPER
     Route: 042
     Dates: start: 20250514, end: 20250520
  6. METHYLPREDNISOLONE [Concomitant]
     Active Substance: METHYLPREDNISOLONE
     Dosage: STEROID TAPERING
     Route: 042
     Dates: start: 2025, end: 20250514
  7. METHYLPREDNISOLONE [Concomitant]
     Active Substance: METHYLPREDNISOLONE
     Dosage: TAPER
     Route: 042
     Dates: start: 20250520

REACTIONS (4)
  - Toxicity to various agents [Recovering/Resolving]
  - Acute kidney injury [Recovering/Resolving]
  - Stomatitis [Unknown]
  - Off label use [Unknown]

NARRATIVE: CASE EVENT DATE: 20250501
